FAERS Safety Report 5152679-7 (Version None)
Quarter: 2006Q4

REPORT INFORMATION
  Report Type: 
  Country: None (occurrence: None)
  Receive Date: 20061109
  Receipt Date: 20061030
  Transmission Date: 20070319
  Serious: Yes (Other)
  Sender: FDA-Public Use
  Company Number: TPA2006A01948

PATIENT
  Age: 54 Year
  Sex: Male
  Weight: 80.7403 kg

DRUGS (6)
  1. ROZEREM [Suspect]
     Indication: INSOMNIA
     Dosage: 8 MG, QHS, PER ORAL
     Route: 048
     Dates: start: 20061001, end: 20061001
  2. CLONIDINE [Concomitant]
  3. ATENOLOL [Concomitant]
  4. ESZOPICLONE                (ESZOPICLONE) [Concomitant]
  5. KLONOPIN [Concomitant]
  6. HYDREA [Concomitant]

REACTIONS (2)
  - DREAMY STATE [None]
  - SLEEP PARALYSIS [None]
